FAERS Safety Report 5938647-3 (Version None)
Quarter: 2008Q4

REPORT INFORMATION
  Report Type: 
  Country: None (occurrence: None)
  Receive Date: 20081103
  Receipt Date: 20081022
  Transmission Date: 20090506
  Serious: Yes (Other)
  Sender: FDA-Public Use
  Company Number: EE-ROCHE-587665

PATIENT
  Sex: Female

DRUGS (1)
  1. ROACCUTANE [Suspect]
     Indication: ACNE CONGLOBATA
     Dosage: DOSAGE REGIMEN: 10 MG X 4
     Route: 048
     Dates: start: 20080815, end: 20080829

REACTIONS (1)
  - ABORTION SPONTANEOUS [None]
